FAERS Safety Report 5808157-2 (Version None)
Quarter: 2008Q3

REPORT INFORMATION
  Report Type: 
  Country: None (occurrence: None)
  Receive Date: 20080708
  Receipt Date: 20080623
  Transmission Date: 20090109
  Serious: Yes (Hospitalization, Disabling)
  Sender: FDA-Public Use
  Company Number: TCI2008A01046

PATIENT
  Age: 82 Year
  Sex: Female

DRUGS (8)
  1. ACTOS [Suspect]
     Indication: TYPE 2 DIABETES MELLITUS
     Dosage: 30 MG (30 MG, 1 IN 1 D)  PER ORAL
     Route: 048
     Dates: start: 20060301, end: 20080202
  2. NOVORAPID 30MIX(INSULIN ASPART) [Concomitant]
  3. NORVASC [Concomitant]
  4. PANALDINE (TICLOPIDINE HYDROCHLORIDE) [Concomitant]
  5. PRAVASTATIN [Concomitant]
  6. PRAVASTATIN [Concomitant]
  7. GLYCORAN (METFORMIN HYDROCHLORIDE) [Concomitant]
  8. LASIX [Concomitant]

REACTIONS (2)
  - CARDIAC FAILURE [None]
  - CEREBRAL INFARCTION [None]
